FAERS Safety Report 10640718 (Version 1)
Quarter: 2014Q4

REPORT INFORMATION
  Report Type: Spontaneous
  Country: US (occurrence: US)
  Receive Date: 20141209
  Receipt Date: 20141209
  Transmission Date: 20150529
  Serious: No
  Sender: FDA-Public Use
  Company Number: US-BAUSCH-BL-2014-006478

PATIENT
  Sex: Female

DRUGS (1)
  1. XENAZINE [Suspect]
     Active Substance: TETRABENAZINE
     Indication: HUNTINGTON^S DISEASE
     Dosage: 12.5 MG IN THE MORNING AND 25 MG IN THE EVENING
     Route: 048
     Dates: start: 20140917

REACTIONS (2)
  - Somnolence [Recovering/Resolving]
  - Hypokinesia [Recovering/Resolving]
